FAERS Safety Report 4727880-4 (Version None)
Quarter: 2005Q3

REPORT INFORMATION
  Report Type: 
  Country: None (occurrence: None)
  Receive Date: 20050727
  Receipt Date: 20050714
  Transmission Date: 20060218
  Serious: Yes (Other)
  Sender: FDA-Public Use
  Company Number: 2005101302

PATIENT
  Age: 43 Year
  Sex: Female

DRUGS (2)
  1. METHYLPREDNISOLONE ACETATE [Suspect]
     Indication: ENDOCRINE OPHTHALMOPATHY
     Dosage: INTRAVENOUS
     Route: 042
     Dates: start: 20020301
  2. PREDNISONE TAB [Suspect]
     Indication: ENDOCRINE OPHTHALMOPATHY
     Dosage: ORAL
     Route: 048

REACTIONS (9)
  - AUTOIMMUNE HEPATITIS [None]
  - BLOOD CHOLESTEROL INCREASED [None]
  - DISEASE RECURRENCE [None]
  - HEPATIC HAEMORRHAGE [None]
  - HEPATITIS A ANTIBODY ABNORMAL [None]
  - HYPERTHYROIDISM [None]
  - HYPOTHYROIDISM POSTOPERATIVE [None]
  - PLATELET COUNT DECREASED [None]
  - PROTHROMBIN LEVEL DECREASED [None]
